FAERS Safety Report 7683948-4 (Version None)
Quarter: 2011Q3

REPORT INFORMATION
  Report Type: 
  Country: None (occurrence: None)
  Receive Date: 20110815
  Receipt Date: 20110813
  Transmission Date: 20111222
  Serious: Yes (Other)
  Sender: FDA-Public Use
  Company Number: US-PFIZER INC-2011152027

PATIENT
  Sex: Female
  Weight: 81.633 kg

DRUGS (6)
  1. CHANTIX [Suspect]
     Dosage: 1 MG, 2X/DAY
     Route: 048
     Dates: start: 20110101, end: 20110801
  2. WELLBUTRIN [Concomitant]
     Dosage: UNK
     Route: 048
  3. CHANTIX [Suspect]
     Indication: SMOKING CESSATION THERAPY
     Dosage: 0.5 MG, 1X/DAY
     Route: 048
     Dates: start: 20110601, end: 20110101
  4. LISINOPRIL [Concomitant]
     Indication: BLOOD PRESSURE ABNORMAL
     Dosage: UNK
  5. GAVISCON [Concomitant]
     Indication: DYSPEPSIA
     Dosage: UNK
  6. METHADONE [Concomitant]
     Dosage: UNK

REACTIONS (8)
  - VOMITING [None]
  - DEPRESSION [None]
  - NAUSEA [None]
  - AGITATION [None]
  - BLOOD PRESSURE INCREASED [None]
  - DRUG INEFFECTIVE [None]
  - DECREASED APPETITE [None]
  - SOMNOLENCE [None]
